FAERS Safety Report 8966684 (Version 1)
Quarter: 2012Q4

REPORT INFORMATION
  Report Type: Report from Study
  Country: DE (occurrence: DE)
  Receive Date: 20121214
  Receipt Date: 20121214
  Transmission Date: 20130627
  Serious: Yes (Hospitalization)
  Sender: FDA-Public Use
  Company Number: DE-BAXTER-2012BAX026877

PATIENT
  Age: 76 Year
  Sex: Male

DRUGS (4)
  1. ENDOXAN 1G [Suspect]
     Indication: NODULAR (FOLLICULAR) LYMPHOMA
     Route: 042
     Dates: start: 20080313
  2. MITOXANTRONE [Suspect]
     Indication: NODULAR (FOLLICULAR) LYMPHOMA
     Route: 042
     Dates: start: 20080313
  3. RITUXIMAB [Suspect]
     Indication: NODULAR (FOLLICULAR) LYMPHOMA
     Route: 042
     Dates: start: 20080312
  4. FLUDARABINE [Suspect]
     Indication: NODULAR (FOLLICULAR) LYMPHOMA
     Route: 042
     Dates: start: 20080313

REACTIONS (4)
  - Nausea [Recovered/Resolved]
  - Neutropenia [Recovered/Resolved]
  - Urosepsis [Recovered/Resolved]
  - Axonal neuropathy [Recovered/Resolved with Sequelae]
